FAERS Safety Report 8904008 (Version 1)
Quarter: 2012Q4

REPORT INFORMATION
  Report Type: 
  Country: KR (occurrence: KR)
  Receive Date: 20121112
  Receipt Date: 20121112
  Transmission Date: 20130627
  Serious: Yes (Other)
  Sender: FDA-Public Use
  Company Number: KR-MYLANLABS-2012S1022637

PATIENT
  Age: 43 Year
  Sex: Female

DRUGS (2)
  1. FLUOROURACIL [Suspect]
     Indication: CERVIX CARCINOMA
     Dosage: 1700mg daily for 5 days
     Route: 065
  2. CISPLATIN [Concomitant]
     Indication: CERVIX CARCINOMA
     Dosage: 100mg at initial day
     Route: 065

REACTIONS (1)
  - Leukoencephalopathy [Recovered/Resolved]
